FAERS Safety Report 8370248-2 (Version None)
Quarter: 2012Q2

REPORT INFORMATION
  Report Type: 
  Country: None (occurrence: None)
  Receive Date: 20120518
  Receipt Date: 20120515
  Transmission Date: 20120825
  Serious: Yes (Other)
  Sender: FDA-Public Use
  Company Number: US-PFIZER INC-2011084817

PATIENT
  Sex: Female
  Weight: 58.957 kg

DRUGS (7)
  1. LIPITOR [Suspect]
     Indication: TRANSIENT ISCHAEMIC ATTACK
     Dosage: 20 MG, 1X/DAY
  2. GLIPIZIDE [Concomitant]
     Indication: DIABETES MELLITUS
     Dosage: UNK
  3. SYNTHROID [Concomitant]
     Dosage: UNK
  4. ZOLOFT [Suspect]
     Dosage: UNK
  5. ASPIRIN [Concomitant]
     Dosage: UNK
  6. JANUVIA [Concomitant]
     Indication: DIABETES MELLITUS
     Dosage: UNK
  7. PLAVIX [Concomitant]
     Dosage: UNK

REACTIONS (3)
  - HEAD INJURY [None]
  - FALL [None]
  - PERIPHERAL ARTERIAL OCCLUSIVE DISEASE [None]
